FAERS Safety Report 25957989 (Version 1)
Quarter: 2025Q4

REPORT INFORMATION
  Report Type: Report from Study
  Country: US (occurrence: US)
  Receive Date: 20251024
  Receipt Date: 20251024
  Transmission Date: 20260118
  Serious: Yes (Other)
  Sender: TAKEDA
  Company Number: US-TAKEDA-2025TUS078436

PATIENT
  Sex: Male

DRUGS (1)
  1. LANADELUMAB [Suspect]
     Active Substance: LANADELUMAB
     Indication: Hereditary angioedema
     Dosage: UNK UNK, Q2WEEKS

REACTIONS (5)
  - Near death experience [Unknown]
  - Hereditary angioedema [Recovered/Resolved]
  - Product use issue [Unknown]
  - Insurance issue [Unknown]
  - Inappropriate schedule of product administration [Unknown]
